FAERS Safety Report 9297096 (Version 1)
Quarter: 2013Q2

REPORT INFORMATION
  Report Type: Spontaneous
  Country: US (occurrence: US)
  Receive Date: 20130518
  Receipt Date: 20130518
  Transmission Date: 20140414
  Serious: Yes (Other)
  Sender: FDA-Public Use
  Company Number: US-BAXTER-2013BAX018214

PATIENT
  Age: 32 Year
  Sex: Female

DRUGS (3)
  1. NEXTERONE_AMIODARONE, HYDROCHLORIDE 1.50 MG/ML_SOLUTION FOR INFUSION_B [Suspect]
     Indication: VENTRICULAR FIBRILLATION
     Route: 042
  2. LIDOCAINE HYDROCHLORIDE AND 5% DEXTROSE INJECTION, USP [Suspect]
     Indication: VENTRICULAR FIBRILLATION
     Route: 042
  3. METOPROLOL [Suspect]
     Indication: VENTRICULAR FIBRILLATION
     Route: 042

REACTIONS (2)
  - Drug ineffective [Recovered/Resolved]
  - Exposure during pregnancy [Recovered/Resolved]
